FAERS Safety Report 6198182-7 (Version None)
Quarter: 2009Q2

REPORT INFORMATION
  Report Type: 
  Country: None (occurrence: None)
  Receive Date: 20090515
  Receipt Date: 20081002
  Transmission Date: 20091009
  Serious: Yes (Hospitalization)
  Sender: FDA-Public Use
  Company Number: APP200800942

PATIENT
  Age: 42 Year
  Sex: Male
  Weight: 106.5 kg

DRUGS (10)
  1. VANCOMYCIN HYDROCHLORIDE [Suspect]
     Indication: PNEUMONIA
     Dosage: 2 GM, X 3 DOSES, INTRAVENOUS, 2 GM, 1 IN 8 HR, INTRAVENOUS
     Route: 042
     Dates: start: 20080713, end: 20080716
  2. VANCOMYCIN HYDROCHLORIDE [Suspect]
     Indication: PNEUMONIA
     Dosage: 2 GM, X 3 DOSES, INTRAVENOUS, 2 GM, 1 IN 8 HR, INTRAVENOUS
     Route: 042
     Dates: start: 20080717, end: 20080717
  3. ZOZYN (PIP/TAZO) [Concomitant]
  4. HEPARIN [Concomitant]
  5. ALBUTEROL [Concomitant]
  6. COREG [Concomitant]
  7. SYNTROID (LEVOTHYROXINE SODIUM) [Concomitant]
  8. LASIX [Concomitant]
  9. ASPIRIN [Concomitant]
  10. ZOFRAN [Concomitant]

REACTIONS (1)
  - RENAL FAILURE ACUTE [None]
